FAERS Safety Report 4268665-5 (Version None)
Quarter: 2004Q1

REPORT INFORMATION
  Report Type: 
  Country: None (occurrence: None)
  Receive Date: 20040108
  Receipt Date: 20031226
  Transmission Date: 20041129
  Serious: Yes (Life-Threatening)
  Sender: FDA-Public Use
  Company Number: 2004000544

PATIENT
  Age: 70 Year
  Sex: Male

DRUGS (3)
  1. UNASYN [Suspect]
     Indication: PNEUMONIA
     Dosage: 6 GRAM (DAILY), INTRAVENOUS
     Route: 042
     Dates: start: 20031221, end: 20031221
  2. ACETYLSALICYLIC ACID SRT [Concomitant]
  3. LOXOPROFEN SODIUM (LOXOPROFEN SODIUM) [Concomitant]

REACTIONS (2)
  - DYSPNOEA [None]
  - PLEURAL EFFUSION [None]
